FAERS Safety Report 5070509-9 (Version None)
Quarter: 2006Q3

REPORT INFORMATION
  Report Type: 
  Country: None (occurrence: None)
  Receive Date: 20060804
  Receipt Date: 20060714
  Transmission Date: 20061208
  Serious: Yes (Hospitalization, Disabling)
  Sender: FDA-Public Use
  Company Number: JP-SP-2006-01801

PATIENT
  Age: 73 Year
  Sex: Male

DRUGS (7)
  1. IMMUCYST [Suspect]
     Indication: BLADDER CANCER
     Route: 043
     Dates: start: 20060602, end: 20060707
  2. TICLOPIDINE HYDROCHLORIDE [Concomitant]
     Route: 048
  3. ASPIRIN [Concomitant]
     Route: 048
  4. OLMESARTAN MEDOXOMIL [Concomitant]
     Route: 048
  5. FAMOTIDINE [Concomitant]
     Route: 048
  6. ETIZOLAM [Concomitant]
     Route: 048
  7. SENNOSIDE [Concomitant]
     Route: 048

REACTIONS (2)
  - ARTHRALGIA [None]
  - GAIT DISTURBANCE [None]
